FAERS Safety Report 4954675-9 (Version None)
Quarter: 2006Q1

REPORT INFORMATION
  Report Type: 
  Country: None (occurrence: None)
  Receive Date: 20060131
  Receipt Date: 20051025
  Transmission Date: 20060701
  Serious: No
  Sender: FDA-Public Use
  Company Number: WAES 0510USA08946

PATIENT
  Age: 52 Year
  Sex: Female

DRUGS (8)
  1. EMEND [Suspect]
     Indication: CHEMOTHERAPY
     Dosage: SEE IMAGE
     Route: 048
     Dates: start: 20050829, end: 20050829
  2. EMEND [Suspect]
     Indication: CHEMOTHERAPY
     Dosage: SEE IMAGE
     Route: 048
     Dates: start: 20050830, end: 20050831
  3. CYTOXAN [Concomitant]
  4. GLUCOVANCE [Concomitant]
  5. CARBOPLATIN [Concomitant]
  6. CISPLATIN [Concomitant]
  7. FLUOROURACIL [Concomitant]
  8. METHOTREXATE [Concomitant]

REACTIONS (1)
  - ABDOMINAL PAIN UPPER [None]
